FAERS Safety Report 7620208-1 (Version None)
Quarter: 2011Q3

REPORT INFORMATION
  Report Type: 
  Country: None (occurrence: None)
  Receive Date: 20110719
  Receipt Date: 20110706
  Transmission Date: 20111222
  Serious: Yes (Hospitalization)
  Sender: FDA-Public Use
  Company Number: PHHY2011IT61455

PATIENT
  Age: 53 Year
  Sex: Male

DRUGS (1)
  1. CYCLOSPORINE [Suspect]
     Indication: LIVER TRANSPLANT
     Dosage: UNK

REACTIONS (16)
  - GENERAL PHYSICAL HEALTH DETERIORATION [None]
  - HEPATITIS C [None]
  - DYSPNOEA [None]
  - BILE DUCT STENOSIS [None]
  - ATELECTASIS [None]
  - PLEURAL EFFUSION [None]
  - PURPURA [None]
  - CHOLANGITIS [None]
  - LYMPHADENOPATHY MEDIASTINAL [None]
  - DRUG INEFFECTIVE [None]
  - SARCOIDOSIS [None]
  - PYREXIA [None]
  - JAUNDICE [None]
  - ASTHENIA [None]
  - COUGH [None]
  - LYMPHADENOPATHY [None]
